FAERS Safety Report 25366115 (Version 1)
Quarter: 2025Q2

REPORT INFORMATION
  Report Type: Spontaneous
  Country: ES (occurrence: ES)
  Receive Date: 20250528
  Receipt Date: 20250528
  Transmission Date: 20250717
  Serious: Yes (Other)
  Sender: ACCORD
  Company Number: None

PATIENT
  Age: 73 Year
  Sex: Female

DRUGS (2)
  1. ZOLEDRONIC ACID [Interacting]
     Active Substance: ZOLEDRONIC ACID
     Indication: Osteoporosis
     Dosage: STRENGTH: 4 MG
     Dates: start: 20250103, end: 20250103
  2. DENOSUMAB [Interacting]
     Active Substance: DENOSUMAB
     Indication: Osteoporosis
     Dosage: STRENGTH: 60 MG SOLUTION FOR INJECTION IN PRE-FILLED SYRINGE
     Dates: start: 20161027, end: 202405

REACTIONS (2)
  - Tenosynovitis [Recovering/Resolving]
  - Polyarthritis [Recovering/Resolving]

NARRATIVE: CASE EVENT DATE: 20250104
